FAERS Safety Report 6059793-2 (Version None)
Quarter: 2009Q1

REPORT INFORMATION
  Report Type: 
  Country: None (occurrence: None)
  Receive Date: 20090130
  Receipt Date: 20090123
  Transmission Date: 20090719
  Serious: Yes (Other)
  Sender: FDA-Public Use
  Company Number: TW-ABBOTT-09P-153-0499540-00

PATIENT
  Sex: Male

DRUGS (3)
  1. DEPAKENE [Suspect]
     Indication: MANIA
     Route: 048
     Dates: start: 20080501, end: 20081101
  2. DEPAKENE [Suspect]
     Route: 048
     Dates: start: 20081101, end: 20090101
  3. ANALGESIC [Concomitant]
     Indication: OTITIS MEDIA
     Route: 065

REACTIONS (3)
  - ABDOMINAL DISCOMFORT [None]
  - AGGRESSION [None]
  - FACIAL PALSY [None]
